FAERS Safety Report 12654526 (Version 3)
Quarter: 2016Q3

REPORT INFORMATION
  Report Type: Report from Study
  Country: CA (occurrence: CA)
  Receive Date: 20160816
  Receipt Date: 20160901
  Transmission Date: 20161109
  Serious: Yes (Death, Hospitalization)
  Sender: FDA-Public Use
  Company Number: CA-ROCHE-1345849

PATIENT
  Age: 76 Year
  Sex: Female

DRUGS (7)
  1. HYDRAZIDE (CANADA) [Concomitant]
     Route: 065
  2. CIMETIDINE [Concomitant]
     Active Substance: CIMETIDINE
  3. LIPITOR [Concomitant]
     Active Substance: ATORVASTATIN CALCIUM
  4. APO-LORAZEPAM [Concomitant]
     Active Substance: LORAZEPAM
  5. ERIVEDGE [Suspect]
     Active Substance: VISMODEGIB
     Indication: BASAL CELL CARCINOMA
     Route: 048
     Dates: start: 2012, end: 201303
  6. ERIVEDGE [Suspect]
     Active Substance: VISMODEGIB
     Route: 048
     Dates: start: 20141027
  7. CAPTOPRIL. [Concomitant]
     Active Substance: CAPTOPRIL

REACTIONS (6)
  - Adenocarcinoma of colon [Fatal]
  - Decreased appetite [Unknown]
  - Ageusia [Unknown]
  - Nasal disorder [Unknown]
  - Anaemia [Fatal]
  - Hypokalaemia [Fatal]

NARRATIVE: CASE EVENT DATE: 201602
